FAERS Safety Report 7583124-X (Version None)
Quarter: 2011Q2

REPORT INFORMATION
  Report Type: 
  Country: None (occurrence: None)
  Receive Date: 20110630
  Receipt Date: 20101006
  Transmission Date: 20111010
  Serious: No
  Sender: FDA-Public Use
  Company Number: US-ASTRAZENECA-2010SE47365

PATIENT
  Sex: Male
  Weight: 90.7 kg

DRUGS (1)
  1. ZOLADEX [Suspect]
     Indication: PROSTATE CANCER
     Route: 058

REACTIONS (4)
  - LACERATION [None]
  - IMPLANT SITE EXTRAVASATION [None]
  - SUTURE INSERTION [None]
  - HAEMORRHAGE [None]
